APPROVED DRUG PRODUCT: VYALEV
Active Ingredient: FOSCARBIDOPA; FOSLEVODOPA
Strength: 120MG/10ML;2400MG/10ML (12MG/ML;240MG/ML)
Dosage Form/Route: SOLUTION;SUBCUTANEOUS
Application: N216962 | Product #001
Applicant: ABBVIE INC
Approved: Oct 16, 2024 | RLD: Yes | RS: Yes | Type: RX

PATENTS:
Patent 12251365 | Expires: Jun 10, 2040
Patent 9446059 | Expires: Oct 21, 2035
Patent 10174061 | Expires: Oct 21, 2035
Patent 10730895 | Expires: Oct 21, 2035

EXCLUSIVITY:
Code: NP | Date: Oct 16, 2027